FAERS Safety Report 12210860 (Version 2)
Quarter: 2016Q2

REPORT INFORMATION
  Report Type: Spontaneous
  Country: US (occurrence: US)
  Receive Date: 20160325
  Receipt Date: 20160405
  Transmission Date: 20160815
  Serious: Yes (Other)
  Sender: FDA-Public Use
  Company Number: US-JNJFOC-20160314492

PATIENT
  Age: 68 Year
  Sex: Female

DRUGS (5)
  1. LOCAL HEMOSTATICS [Concomitant]
     Indication: HAEMOSTASIS
     Route: 061
  2. HUMAN THROMBIN [Suspect]
     Active Substance: THROMBIN HUMAN
     Indication: HAEMOSTASIS
     Route: 061
  3. RECOTHROM [Suspect]
     Active Substance: THROMBIN ALFA
     Indication: HAEMOSTASIS
     Route: 050
  4. SURGIFOAM [Suspect]
     Active Substance: GELATIN\THROMBIN HUMAN
     Indication: HAEMOSTASIS
     Route: 050
  5. THROMBIN [Suspect]
     Active Substance: THROMBIN
     Indication: HAEMOSTASIS
     Route: 061

REACTIONS (2)
  - Pulmonary embolism [Recovered/Resolved]
  - Hypotension [Recovered/Resolved]
